FAERS Safety Report 21240416 (Version 3)
Quarter: 2022Q3

REPORT INFORMATION
  Report Type: Spontaneous
  Country: US (occurrence: US)
  Receive Date: 20220822
  Receipt Date: 20220930
  Transmission Date: 20221027
  Serious: Yes (Other)
  Sender: FDA-Public Use
  Company Number: US-JNJFOC-20220831755

PATIENT
  Age: 57 Year
  Sex: Female
  Weight: 136.20 kg

DRUGS (1)
  1. XARELTO [Suspect]
     Active Substance: RIVAROXABAN
     Indication: Thrombosis
     Route: 048
     Dates: start: 20220701

REACTIONS (1)
  - Peripheral artery thrombosis [Unknown]

NARRATIVE: CASE EVENT DATE: 20220101
